FAERS Safety Report 8614111-8 (Version None)
Quarter: 2012Q3

REPORT INFORMATION
  Report Type: 
  Country: None (occurrence: None)
  Receive Date: 20120823
  Receipt Date: 20120815
  Transmission Date: 20120928
  Serious: Yes (Hospitalization, Other)
  Sender: FDA-Public Use
  Company Number: US-BAYER-2012-059092

PATIENT
  Age: 32 Year
  Sex: Female

DRUGS (18)
  1. TRAMADOL HCL [Concomitant]
     Dosage: 50 MG, UNK
     Route: 048
     Dates: start: 20080215
  2. YASMIN [Suspect]
     Indication: MENSTRUAL DISORDER
     Dosage: UNK
     Dates: start: 20070801
  3. AUGMENTIN '500' [Concomitant]
     Dosage: 875 MG, BID
     Route: 048
     Dates: start: 20080124
  4. AZITHROMYCIN [Concomitant]
     Dosage: 250 MG, UNK
     Route: 048
     Dates: start: 20080129
  5. CARISOPRODOL [Concomitant]
     Dosage: 350 MG, UNK
     Route: 048
     Dates: start: 20080208
  6. ZOVIRAX [Concomitant]
     Dosage: 5 %, UNK
     Route: 061
     Dates: start: 20080320
  7. EFFEXOR XR [Concomitant]
     Dosage: 75 MG, UNK
     Route: 048
     Dates: start: 20080124
  8. IBUPROFEN [Concomitant]
     Dosage: 800 MG, UNK
     Route: 048
     Dates: start: 20080228
  9. ATENOLOL [Concomitant]
     Dosage: 25 MG, UNK
     Route: 048
     Dates: start: 20080320
  10. ABILIFY [Concomitant]
     Dosage: 10 MG, UNK
     Route: 048
     Dates: start: 20080124
  11. ALBUTEROL [Concomitant]
     Dosage: UNK
     Route: 048
     Dates: start: 20080129
  12. TRAMADOL HYDROCHLORIDE AND ACETAMINOPHEN [Concomitant]
     Dosage: 37.5 /325 MG
     Route: 048
     Dates: start: 20080208
  13. PROMETHAZINE [Concomitant]
     Dosage: 25 MG, UNK
     Route: 048
     Dates: start: 20080226
  14. TOPAMAX [Concomitant]
     Dosage: 25 MG, UNK
     Route: 048
     Dates: start: 20080228
  15. CLONAZEPAM [Concomitant]
     Dosage: 0.5 MG, UNK
     Dates: start: 20080302
  16. TRAZODONE HYDROCHLORIDE [Concomitant]
     Dosage: 50 MG, BID
     Route: 048
     Dates: start: 20080223
  17. EFFEXOR [Concomitant]
  18. FERROUS SULFATE TAB [Concomitant]
     Dosage: 325
     Route: 048
     Dates: start: 20080424

REACTIONS (4)
  - DEEP VEIN THROMBOSIS [None]
  - EMOTIONAL DISTRESS [None]
  - PAIN [None]
  - INJURY [None]
